FAERS Safety Report 9926363 (Version 1)
Quarter: 2014Q1

REPORT INFORMATION
  Report Type: Spontaneous
  Country: US (occurrence: US)
  Receive Date: 20140226
  Receipt Date: 20140226
  Transmission Date: 20141002
  Serious: Yes (Other)
  Sender: FDA-Public Use
  Company Number: US-MYLANLABS-2014S1003737

PATIENT
  Age: 24 Year
  Sex: Female

DRUGS (9)
  1. METFORMIN [Suspect]
     Indication: POLYCYSTIC OVARIES
     Route: 065
  2. METFORMIN [Suspect]
     Indication: OFF LABEL USE
     Route: 065
  3. ETHINYLESTRADIOL [Suspect]
     Indication: POLYCYSTIC OVARIES
     Dosage: BIRTH CONTROL PILLS
     Route: 065
  4. HYDROXYCHLOROQUINE [Concomitant]
     Route: 065
  5. LEVOTHYROXINE SODIUM [Concomitant]
     Route: 065
  6. GABAPENTIN [Concomitant]
     Route: 065
  7. CITALOPRAM [Concomitant]
     Route: 065
  8. RABEPRAZOLE [Concomitant]
     Route: 065
  9. SPIRONOLACTONE [Concomitant]
     Indication: POLYCYSTIC OVARIES
     Route: 065

REACTIONS (2)
  - Angioedema [Recovered/Resolved]
  - Gastrointestinal disorder [Unknown]
